FAERS Safety Report 15230554 (Version 1)
Quarter: 2018Q4

REPORT INFORMATION
  Report Type: Spontaneous
  Country: US (occurrence: US)
  Receive Date: 20180802
  Receipt Date: 20180802
  Transmission Date: 20190204
  Serious: No
  Sender: FDA-Public Use
  Company Number: US-TEVA-2018-US-936222

PATIENT
  Sex: Female

DRUGS (1)
  1. CONSTULOSE [Suspect]
     Active Substance: LACTULOSE
     Indication: CONSTIPATION
     Dosage: DOSE STRENGTH:  10G/15ML
     Dates: start: 201501

REACTIONS (1)
  - Blood glucose increased [Unknown]
